FAERS Safety Report 19031163 (Version 4)
Quarter: 2022Q2

REPORT INFORMATION
  Report Type: Report from Study
  Country: GR (occurrence: GR)
  Receive Date: 20210319
  Receipt Date: 20220421
  Transmission Date: 20220721
  Serious: Yes (Death, Other)
  Sender: FDA-Public Use
  Company Number: GR-JNJFOC-20200142256

PATIENT

DRUGS (2)
  1. DARZALEX [Suspect]
     Active Substance: DARATUMUMAB
     Indication: Plasma cell myeloma
     Dosage: FOR 28 DAYS WEEKLY FOR CYCLES 12, EVERY 2 WEEKS FOR CYCLES 36,FOLLOWED BY EVERY 4 WEEKS
     Route: 042
  2. DEXAMETHASONE [Suspect]
     Active Substance: DEXAMETHASONE
     Indication: Plasma cell myeloma
     Dosage: 4WEEK CYCLE
     Route: 048

REACTIONS (15)
  - Myocardial infarction [Fatal]
  - Peritonitis [Fatal]
  - Performance status decreased [Fatal]
  - Lower respiratory tract infection [Fatal]
  - Septic shock [Fatal]
  - Sepsis [Fatal]
  - Hyperkalaemia [Unknown]
  - Cerebrovascular accident [Unknown]
  - Acute kidney injury [Unknown]
  - Hypocalcaemia [Unknown]
  - Hyperglycaemia [Unknown]
  - Pneumonia [Unknown]
  - Pneumonia [Unknown]
  - Anaemia [Unknown]
  - Hypercalcaemia [Unknown]
